FAERS Safety Report 5925971-3 (Version None)
Quarter: 2008Q4

REPORT INFORMATION
  Report Type: 
  Country: None (occurrence: None)
  Receive Date: 20081021
  Receipt Date: 20081014
  Transmission Date: 20090506
  Serious: Yes (Other)
  Sender: FDA-Public Use
  Company Number: NL-B.I. PHARMACEUTICALS,INC./RIDGEFIELD-2008-DE-01640GD

PATIENT

DRUGS (6)
  1. ACTIVASE [Suspect]
     Indication: ISCHAEMIC STROKE
     Route: 042
  2. ASPIRIN [Suspect]
     Indication: ANTIPLATELET THERAPY
     Dosage: 25MG
  3. ASPIRIN [Suspect]
     Dosage: 30 - 50 MG
  4. ASPIRIN [Suspect]
     Dosage: 80 - 100 MG
  5. DIPYRIDAMOLE [Suspect]
     Indication: ANTIPLATELET THERAPY
     Dosage: 200MG
  6. STATIN [Concomitant]
     Indication: HYPERLIPIDAEMIA

REACTIONS (1)
  - CEREBRAL HAEMORRHAGE [None]
